FAERS Safety Report 7207870-2 (Version None)
Quarter: 2010Q4

REPORT INFORMATION
  Report Type: 
  Country: None (occurrence: None)
  Receive Date: 20101221
  Receipt Date: 20101204
  Transmission Date: 20110411
  Serious: Yes (Hospitalization)
  Sender: FDA-Public Use
  Company Number: 2010AP002595

PATIENT
  Age: 71 Year
  Sex: Male

DRUGS (3)
  1. PERINDOPRIL ERBUMINE [Suspect]
     Dosage: 4 MG; QD
  2. ATORVASTATIN (ATORVASTATIN) [Suspect]
     Dosage: 20 MG; QD
  3. PHENPROCOUMON (PHENPROCOUMON) [Suspect]
     Dosage: PO
     Route: 048

REACTIONS (7)
  - EOSINOPHILIA [None]
  - EPISTAXIS [None]
  - HAEMATURIA [None]
  - HAEMOCHROMATOSIS [None]
  - HEPATIC CIRRHOSIS [None]
  - HEPATIC FAILURE [None]
  - LIVER INJURY [None]
